FAERS Safety Report 24354884 (Version 1)
Quarter: 2024Q3

REPORT INFORMATION
  Report Type: Report from Study
  Country: AT (occurrence: AT)
  Receive Date: 20240923
  Receipt Date: 20240923
  Transmission Date: 20241016
  Serious: Yes (Other)
  Sender: SANDOZ
  Company Number: AT-SANDOZ-SDZ2024AT081987

PATIENT
  Sex: Male

DRUGS (1)
  1. OMNITROPE [Suspect]
     Active Substance: SOMATROPIN
     Indication: Product used for unknown indication
     Dosage: 1.6 MG, QD (PEN)
     Route: 065
     Dates: start: 20220927

REACTIONS (1)
  - Growth retardation [Not Recovered/Not Resolved]
